FAERS Safety Report 7815140-4 (Version None)
Quarter: 2011Q4

REPORT INFORMATION
  Report Type: 
  Country: None (occurrence: None)
  Receive Date: 20111014
  Receipt Date: 20111014
  Transmission Date: 20120403
  Serious: Yes (Death)
  Sender: FDA-Public Use
  Company Number: None

PATIENT
  Age: 49 Year
  Sex: Female
  Weight: 72.574 kg

DRUGS (2)
  1. PHENTERMINE [Concomitant]
     Indication: WEIGHT CONTROL
     Dosage: ONE
     Dates: start: 20110620, end: 20110801
  2. ATENOLOL [Suspect]
     Indication: HAEMORRHAGE
     Dosage: ONE
     Dates: start: 20100101, end: 20110801

REACTIONS (3)
  - CEREBROVASCULAR ACCIDENT [None]
  - HYPOAESTHESIA [None]
  - LOSS OF CONSCIOUSNESS [None]
